FAERS Safety Report 9449262 (Version 3)
Quarter: 2013Q4

REPORT INFORMATION
  Report Type: Spontaneous
  Country: FR (occurrence: FR)
  Receive Date: 20130808
  Receipt Date: 20131105
  Transmission Date: 20140711
  Serious: Yes (Hospitalization)
  Sender: FDA-Public Use
  Company Number: FR-GLAXOSMITHKLINE-B0911821A

PATIENT
  Age: 81 Year
  Sex: Female

DRUGS (10)
  1. ZOPHREN [Suspect]
     Indication: PREMEDICATION
     Route: 051
  2. ELOXATINE [Suspect]
     Indication: ADENOCARCINOMA
     Dosage: 72.25MGM2 CYCLIC
     Route: 051
  3. FLUORO-URACILE [Suspect]
     Indication: ADENOCARCINOMA
     Route: 042
  4. FOLINATE DE CALCIUM [Suspect]
     Indication: ADENOCARCINOMA
     Dosage: 200MGM2 CYCLIC
     Route: 042
  5. EMEND [Suspect]
     Indication: PREMEDICATION
     Route: 048
  6. PRIMPERAN [Suspect]
     Indication: PREMEDICATION
     Dosage: 200MG PER DAY
     Route: 051
  7. PREDNISONE [Suspect]
     Indication: PREMEDICATION
     Dosage: 20MG PER DAY
     Route: 048
  8. SPASFON [Suspect]
     Indication: SELF-MEDICATION
     Route: 048
  9. BISOPROLOL [Concomitant]
  10. AERIUS [Concomitant]

REACTIONS (8)
  - Type IV hypersensitivity reaction [Recovered/Resolved]
  - Nausea [Recovered/Resolved]
  - Vomiting [Recovered/Resolved]
  - Face oedema [Recovered/Resolved]
  - Oedema peripheral [Recovered/Resolved]
  - Rash [Recovered/Resolved]
  - Urticaria [Recovered/Resolved]
  - Hypotension [Recovered/Resolved]
